FAERS Safety Report 22918404 (Version 4)
Quarter: 2025Q1

REPORT INFORMATION
  Report Type: Spontaneous
  Country: US (occurrence: US)
  Receive Date: 20230907
  Receipt Date: 20250310
  Transmission Date: 20250409
  Serious: No
  Sender: SANOFI AVENTIS
  Company Number: US-SA-SAC20230904000236

PATIENT
  Age: 71 Year
  Sex: Female

DRUGS (1)
  1. DUPIXENT [Suspect]
     Active Substance: DUPILUMAB
     Indication: Dermatitis atopic
     Dosage: 300 MG, QOW
     Route: 058

REACTIONS (15)
  - Lung disorder [Unknown]
  - Fatigue [Unknown]
  - Cough [Unknown]
  - Chest pain [Unknown]
  - Asthenia [Unknown]
  - Lung hyperinflation [Unknown]
  - Fall [Recovering/Resolving]
  - Upper limb fracture [Unknown]
  - Lower limb fracture [Unknown]
  - Hand fracture [Unknown]
  - Dermatitis atopic [Unknown]
  - Hypersensitivity [Unknown]
  - Therapeutic response decreased [Unknown]
  - Injection site pain [Unknown]
  - Injection site bruising [Unknown]

NARRATIVE: CASE EVENT DATE: 20240928
